FAERS Safety Report 8051082-X (Version None)
Quarter: 2012Q1

REPORT INFORMATION
  Report Type: 
  Country: None (occurrence: None)
  Receive Date: 20120117
  Receipt Date: 20120110
  Transmission Date: 20120608
  Serious: Yes (Other)
  Sender: FDA-Public Use
  Company Number: PHHY2012CA002761

PATIENT
  Sex: Female

DRUGS (2)
  1. GILENYA [Suspect]
     Indication: RELAPSING-REMITTING MULTIPLE SCLEROSIS
     Dosage: 0.5 MG, QD
     Route: 048
     Dates: start: 20110920
  2. DIOVAN [Concomitant]
     Dates: start: 20111223

REACTIONS (2)
  - OPTIC DISC HAEMORRHAGE [None]
  - BLOOD PRESSURE INCREASED [None]
